FAERS Safety Report 4655879-5 (Version None)
Quarter: 2005Q2

REPORT INFORMATION
  Report Type: 
  Country: None (occurrence: None)
  Receive Date: 20050505
  Receipt Date: 20050505
  Transmission Date: 20051028
  Serious: Yes (Life-Threatening, Other)
  Sender: FDA-Public Use
  Company Number: None

PATIENT
  Age: 61 Year
  Sex: Female
  Weight: 77.1115 kg

DRUGS (1)
  1. GABITRIL [Suspect]
     Indication: DRUG WITHDRAWAL SYNDROME
     Dosage: PO MULTIPLE INCR. DOSES    SEVERAL MONTH
     Route: 048

REACTIONS (4)
  - ASTHENIA [None]
  - HEART RATE IRREGULAR [None]
  - OFF LABEL USE [None]
  - PULSE ABNORMAL [None]
